FAERS Safety Report 8481444-8 (Version None)
Quarter: 2012Q2

REPORT INFORMATION
  Report Type: 
  Country: None (occurrence: None)
  Receive Date: 20120619
  Receipt Date: 20120615
  Transmission Date: 20120825
  Serious: Yes (Death)
  Sender: FDA-Public Use
  Company Number: 2012SP032068

PATIENT
  Age: 43 Year
  Sex: Male

DRUGS (4)
  1. HEROIN (DIAMORPHINE) [Suspect]
     Indication: PRODUCT USED FOR UNKNOWN INDICATION
  2. REBETOL [Suspect]
     Indication: PRODUCT USED FOR UNKNOWN INDICATION
  3. VICTRELIS [Suspect]
     Indication: PRODUCT USED FOR UNKNOWN INDICATION
  4. PEG-INTRON [Suspect]
     Indication: PRODUCT USED FOR UNKNOWN INDICATION

REACTIONS (5)
  - ANAEMIA [None]
  - DRUG DEPENDENCE [None]
  - LEUKOPENIA [None]
  - PNEUMONIA [None]
  - SEPTIC SHOCK [None]
